FAERS Safety Report 15171432 (Version 1)
Quarter: 2018Q3

REPORT INFORMATION
  Report Type: Other
  Country: CA (occurrence: CA)
  Receive Date: 20180720
  Receipt Date: 20180720
  Transmission Date: 20181010
  Serious: Yes (Hospitalization, Other)
  Sender: FDA-Public Use
  Company Number: CA-APOTEX-2018AP017154

PATIENT
  Age: 48 Year
  Sex: Female
  Weight: 57 kg

DRUGS (8)
  1. CONSTELLA [Concomitant]
     Active Substance: LINACLOTIDE
     Indication: PRODUCT USED FOR UNKNOWN INDICATION
     Route: 065
  2. PRAZOSIN. [Suspect]
     Active Substance: PRAZOSIN
     Indication: PRODUCT USED FOR UNKNOWN INDICATION
     Route: 065
  3. SENNOSIDE                          /00571901/ [Concomitant]
     Active Substance: SENNOSIDES A AND B
     Indication: PRODUCT USED FOR UNKNOWN INDICATION
     Route: 065
  4. POLYETHYLENE GLYCOL [Concomitant]
     Active Substance: POLYETHYLENE GLYCOLS
     Indication: PRODUCT USED FOR UNKNOWN INDICATION
     Route: 065
  5. APO?PRAZO [Suspect]
     Active Substance: PRAZOSIN HYDROCHLORIDE
     Indication: POST-TRAUMATIC STRESS DISORDER
  6. APO?PRAZO [Suspect]
     Active Substance: PRAZOSIN HYDROCHLORIDE
     Indication: NIGHTMARE
  7. PAXIL [Suspect]
     Active Substance: PAROXETINE HYDROCHLORIDE
     Indication: PRODUCT USED FOR UNKNOWN INDICATION
     Route: 065
  8. APO?PRAZO [Suspect]
     Active Substance: PRAZOSIN HYDROCHLORIDE
     Indication: SLEEP DISORDER
     Dosage: UNK, BID
     Route: 048

REACTIONS (8)
  - Dysuria [Recovering/Resolving]
  - Constipation [Recovering/Resolving]
  - Abdominal pain lower [Recovering/Resolving]
  - Ileus paralytic [Recovering/Resolving]
  - Abnormal faeces [Recovering/Resolving]
  - Vaginal haemorrhage [Recovering/Resolving]
  - Abdominal discomfort [Recovering/Resolving]
  - Pain [Recovering/Resolving]
